FAERS Safety Report 9368202 (Version 1)
Quarter: 2013Q2

REPORT INFORMATION
  Report Type: Spontaneous
  Country: US (occurrence: US)
  Receive Date: 20130625
  Receipt Date: 20130625
  Transmission Date: 20140414
  Serious: No
  Sender: FDA-Public Use
  Company Number: US-ASTELLAS-2013US003640

PATIENT
  Sex: Female
  Weight: 65 kg

DRUGS (3)
  1. VESICARE [Suspect]
     Indication: INCONTINENCE
     Dosage: 5 MG, UID/QD
     Route: 048
  2. MEDICATION [Concomitant]
     Indication: DIABETES MELLITUS
     Dosage: 1 PILL TWICE DAILY
     Route: 048
  3. MEDICATION [Concomitant]
     Indication: GLAUCOMA
     Dosage: UNK
     Route: 065

REACTIONS (6)
  - Inappropriate schedule of drug administration [Unknown]
  - Lip dry [Unknown]
  - Chapped lips [Unknown]
  - Vision blurred [Unknown]
  - Constipation [Unknown]
  - Dry mouth [Unknown]
